FAERS Safety Report 5766280-5 (Version None)
Quarter: 2008Q2

REPORT INFORMATION
  Report Type: 
  Country: None (occurrence: None)
  Receive Date: 20080606
  Receipt Date: 20080522
  Transmission Date: 20081010
  Serious: Yes (Death, Hospitalization)
  Sender: FDA-Public Use
  Company Number: 2008AL005787

PATIENT
  Age: 82 Year
  Sex: Female
  Weight: 52.1637 kg

DRUGS (2)
  1. DIGOXIN [Suspect]
     Indication: ATRIAL FIBRILLATION
     Dates: start: 20040101
  2. METOPROLOL [Concomitant]

REACTIONS (3)
  - DYSPHAGIA [None]
  - MUSCLE DISORDER [None]
  - MUSCULAR WEAKNESS [None]
